FAERS Safety Report 7299529-0 (Version None)
Quarter: 2011Q1

REPORT INFORMATION
  Report Type: 
  Country: None (occurrence: None)
  Receive Date: 20110209
  Receipt Date: 20110202
  Transmission Date: 20110831
  Serious: Yes (Other)
  Sender: FDA-Public Use
  Company Number: 2011VX000405

PATIENT
  Age: 26 Year
  Sex: Male

DRUGS (1)
  1. CUPRIMINE [Suspect]
     Indication: HEPATO-LENTICULAR DEGENERATION
     Dosage: 500 MG;BID;PO
     Route: 048
     Dates: start: 19910101

REACTIONS (9)
  - DYSARTHRIA [None]
  - HEPATIC CIRRHOSIS [None]
  - CEREBRAL ATROPHY [None]
  - NUCLEAR MAGNETIC RESONANCE IMAGING BRAIN ABNORMAL [None]
  - URINE COPPER INCREASED [None]
  - ELASTOSIS PERFORANS [None]
  - DYSTONIA [None]
  - BLOOD COPPER INCREASED [None]
  - LIVER INJURY [None]
